FAERS Safety Report 9474182 (Version 2)
Quarter: 2013Q3

REPORT INFORMATION
  Report Type: Spontaneous
  Country: US (occurrence: US)
  Receive Date: 20130823
  Receipt Date: 20130829
  Transmission Date: 20140515
  Serious: Yes (Other)
  Sender: FDA-Public Use
  Company Number: US-TEVA-427731USA

PATIENT
  Age: 30 Year
  Sex: Female
  Weight: 85.35 kg

DRUGS (1)
  1. PARAGARD 380A [Suspect]
     Indication: CONTRACEPTION
     Route: 015
     Dates: start: 20111026, end: 20130819

REACTIONS (8)
  - Pregnancy with contraceptive device [Not Recovered/Not Resolved]
  - Drug ineffective [Unknown]
  - Abortion threatened [Unknown]
  - Device dislocation [Unknown]
  - Pelvic pain [Not Recovered/Not Resolved]
  - Vaginal discharge [Recovered/Resolved]
  - Metrorrhagia [Not Recovered/Not Resolved]
  - Hormone level abnormal [Unknown]
